FAERS Safety Report 8225687-7 (Version None)
Quarter: 2012Q1

REPORT INFORMATION
  Report Type: 
  Country: None (occurrence: None)
  Receive Date: 20120321
  Receipt Date: 20120312
  Transmission Date: 20120608
  Serious: Yes (Other)
  Sender: FDA-Public Use
  Company Number: SE-ELI_LILLY_AND_COMPANY-SE201203004889

PATIENT
  Sex: Male

DRUGS (4)
  1. NPH INSULIN [Concomitant]
  2. DEXTROSE [Concomitant]
  3. ACTRAPID                           /00646001/ [Concomitant]
  4. EXENATIDE [Suspect]

REACTIONS (1)
  - BLOOD PRESSURE SYSTOLIC INCREASED [None]
